FAERS Safety Report 9186096 (Version 2)
Quarter: 2013Q1

REPORT INFORMATION
  Report Type: Spontaneous
  Country: US (occurrence: US)
  Receive Date: 20130325
  Receipt Date: 20130329
  Transmission Date: 20140127
  Serious: Yes (Hospitalization)
  Sender: FDA-Public Use
  Company Number: US-GLAXOSMITHKLINE-A0744067A

PATIENT
  Age: 70 Year
  Sex: Male
  Weight: 88.6 kg

DRUGS (6)
  1. AVANDIA [Suspect]
     Indication: TYPE 2 DIABETES MELLITUS
     Dosage: 2MG TWICE PER DAY
     Route: 048
     Dates: start: 200303, end: 200704
  2. FLAX SEED OIL [Concomitant]
  3. B COMPLEX [Concomitant]
  4. GLUCOTROL XL [Concomitant]
     Dosage: 2.5MG TWICE PER DAY
  5. GLUCOPHAGE [Concomitant]
     Dosage: 500MG TWICE PER DAY
  6. ARMOUR THYROID [Concomitant]

REACTIONS (1)
  - Myocardial infarction [Unknown]
